FAERS Safety Report 7998324-4 (Version None)
Quarter: 2011Q4

REPORT INFORMATION
  Report Type: 
  Country: None (occurrence: None)
  Receive Date: 20111221
  Receipt Date: 20110711
  Transmission Date: 20120403
  Serious: No
  Sender: FDA-Public Use
  Company Number: US-GLAXOSMITHKLINE-A0936313A

PATIENT

DRUGS (1)
  1. LOVAZA [Suspect]
     Route: 048

REACTIONS (1)
  - DYSGEUSIA [None]
